FAERS Safety Report 5866133-8 (Version None)
Quarter: 2008Q3

REPORT INFORMATION
  Report Type: 
  Country: None (occurrence: None)
  Receive Date: 20080829
  Receipt Date: 20080819
  Transmission Date: 20090109
  Serious: Yes (Disabling)
  Sender: FDA-Public Use
  Company Number: GB-PFIZER INC-2008069432

PATIENT
  Age: 32 Year
  Sex: Male

DRUGS (2)
  1. CHANTIX [Suspect]
     Indication: SMOKING CESSATION THERAPY
     Route: 048
  2. FLOXACILLIN SODIUM [Concomitant]
     Indication: CHALAZION
     Dates: start: 20080604, end: 20080611

REACTIONS (6)
  - APATHY [None]
  - ARTHRALGIA [None]
  - DEPRESSED MOOD [None]
  - FATIGUE [None]
  - INCORRECT DOSE ADMINISTERED [None]
  - MOUTH ULCERATION [None]
